FAERS Safety Report 5794297-3 (Version None)
Quarter: 2008Q2

REPORT INFORMATION
  Report Type: 
  Country: None (occurrence: None)
  Receive Date: 20080625
  Receipt Date: 20080613
  Transmission Date: 20081010
  Serious: Yes (Hospitalization)
  Sender: FDA-Public Use
  Company Number: CLOF-10226

PATIENT
  Age: 5 Year
  Sex: Male
  Weight: 18.2 kg

DRUGS (7)
  1. CLOFARABINE (CLOFARABINE) [Suspect]
     Indication: T-CELL TYPE ACUTE LEUKAEMIA
     Dosage: 15 MG, QDX5, INTRAVENOUS
     Route: 042
     Dates: start: 20060311
  2. ETOPOSIDE [Suspect]
     Indication: T-CELL TYPE ACUTE LEUKAEMIA
     Dosage: 56 MG, INTRAVENOUS
     Route: 042
     Dates: start: 20060311
  3. CYCLOPHOSPHAMIDE [Suspect]
     Indication: T-CELL TYPE ACUTE LEUKAEMIA
     Dosage: 255 MG, INTRAVENOUS
     Route: 042
     Dates: start: 20060311
  4. DAPSONE [Concomitant]
  5. NEUPOGEN [Concomitant]
  6. CIPROFLOXACIN HCL [Concomitant]
  7. FLUCONAZOLE [Concomitant]

REACTIONS (6)
  - BK VIRUS INFECTION [None]
  - CYSTITIS HAEMORRHAGIC [None]
  - FEBRILE NEUTROPENIA [None]
  - GASTROINTESTINAL MUCOSAL DISORDER [None]
  - HAEMATURIA [None]
  - ULTRASOUND BLADDER ABNORMAL [None]
